FAERS Safety Report 10673833 (Version 1)
Quarter: 2014Q4

REPORT INFORMATION
  Report Type: Spontaneous
  Country: US (occurrence: None)
  Receive Date: 20141222
  Receipt Date: 20141222
  Transmission Date: 20150529
  Serious: Yes (Hospitalization)
  Sender: FDA-Public Use
  Company Number: 2009-US-0001

PATIENT
  Sex: Female

DRUGS (1)
  1. SANCUSO [Suspect]
     Active Substance: GRANISETRON
     Indication: PROPHYLAXIS OF NAUSEA AND VOMITING
     Route: 062

REACTIONS (4)
  - Vomiting [None]
  - Wrong technique in drug usage process [None]
  - Product adhesion issue [None]
  - Nausea [None]
